FAERS Safety Report 5529890-6 (Version None)
Quarter: 2007Q4

REPORT INFORMATION
  Report Type: 
  Country: None (occurrence: None)
  Receive Date: 20071129
  Receipt Date: 20070402
  Transmission Date: 20080405
  Serious: No
  Sender: FDA-Public Use
  Company Number: US-ABBOTT-07P-163-0364509-00

PATIENT
  Sex: Female
  Weight: 90.8 kg

DRUGS (5)
  1. MERIDIA [Suspect]
     Indication: WEIGHT CONTROL
     Route: 048
     Dates: start: 20060201, end: 20070326
  2. VYTORIN [Concomitant]
     Indication: DRUG USE FOR UNKNOWN INDICATION
  3. MEDROXYPROGESTERONE ACETATE [Concomitant]
     Indication: DRUG USE FOR UNKNOWN INDICATION
  4. ESTRADIOL [Concomitant]
     Indication: DRUG USE FOR UNKNOWN INDICATION
  5. CYCLOBENZAPRINE HCL [Concomitant]
     Indication: DRUG USE FOR UNKNOWN INDICATION

REACTIONS (3)
  - RASH [None]
  - RASH PRURITIC [None]
  - SKIN BURNING SENSATION [None]
